FAERS Safety Report 11650208 (Version 2)
Quarter: 2016Q1

REPORT INFORMATION
  Report Type: Spontaneous
  Country: US (occurrence: US)
  Receive Date: 20151021
  Receipt Date: 20160106
  Transmission Date: 20160525
  Serious: No
  Sender: FDA-Public Use
  Company Number: US-PFIZER INC-2015356627

PATIENT
  Age: 84 Year
  Sex: Female

DRUGS (3)
  1. METHYLPREDNISOLONE. [Suspect]
     Active Substance: METHYLPREDNISOLONE
     Indication: ERYTHEMA
     Dosage: 4 MG, UNK (TAKEN FOR SIX DAYS)
     Dates: start: 20150927
  2. METHYLPREDNISOLONE. [Suspect]
     Active Substance: METHYLPREDNISOLONE
     Indication: RASH PRURITIC
     Dosage: UNK(1 PACK OF 21 TABLETS TAKEN IN 6 DAY PERIOD OF EACH MG.)
     Dates: start: 20150928
  3. KERYDIN [Suspect]
     Active Substance: TAVABOROLE
     Dosage: UNK
     Dates: start: 20150821, end: 20150925

REACTIONS (4)
  - Discomfort [Unknown]
  - Drug ineffective [Recovered/Resolved]
  - Intentional product misuse [Unknown]
  - Rash [Recovered/Resolved]

NARRATIVE: CASE EVENT DATE: 20150927
